FAERS Safety Report 7253204-7 (Version None)
Quarter: 2011Q1

REPORT INFORMATION
  Report Type: 
  Country: None (occurrence: None)
  Receive Date: 20110129
  Receipt Date: 20100217
  Transmission Date: 20110831
  Serious: Yes (Other)
  Sender: FDA-Public Use
  Company Number: US-ABBOTT-10P-163-0627673-00

PATIENT
  Sex: Female
  Weight: 90.8 kg

DRUGS (8)
  1. NEURONTIN [Concomitant]
     Indication: PAIN
  2. PROZAC [Concomitant]
     Indication: DEPRESSION
     Route: 048
  3. HYDROCODONE [Concomitant]
     Indication: PAIN
     Dosage: 10-325MG, 2-4 TABS PER DAY, AS NEEDED
  4. ATENOLOL [Concomitant]
     Indication: HYPERTENSION
     Route: 048
  5. PROTONIX [Concomitant]
     Indication: GASTROOESOPHAGEAL REFLUX DISEASE
     Route: 048
  6. HUMIRA [Suspect]
     Indication: CROHN'S DISEASE
     Route: 058
     Dates: start: 20080201
  7. ZANTAC [Concomitant]
     Indication: GASTROOESOPHAGEAL REFLUX DISEASE
     Route: 048
  8. CARAFATE [Concomitant]
     Indication: GASTROINTESTINAL ULCER
     Dosage: 2 TSP, 2-4 TIMES A DAY
     Route: 048

REACTIONS (6)
  - CROHN'S DISEASE [None]
  - POLYP [None]
  - GALLBLADDER PAIN [None]
  - RECTAL CANCER [None]
  - ARTHRALGIA [None]
  - ABDOMINAL PAIN [None]
